FAERS Safety Report 9413242 (Version 1)
Quarter: 2013Q3

REPORT INFORMATION
  Report Type: Spontaneous
  Country: US (occurrence: US)
  Receive Date: 20130722
  Receipt Date: 20130722
  Transmission Date: 20140515
  Serious: Yes (Other)
  Sender: FDA-Public Use
  Company Number: US-BAYER-2013-086352

PATIENT
  Age: 62 Year
  Sex: Female
  Weight: 66.21 kg

DRUGS (13)
  1. BAYER GENUINE ASPIRIN ORIGINAL STRENGTH [Suspect]
     Indication: PAIN IN EXTREMITY
  2. BAYER GENUINE ASPIRIN ORIGINAL STRENGTH [Suspect]
     Indication: BACK PAIN
  3. LYRICA [Suspect]
     Indication: PAIN IN EXTREMITY
     Dosage: 2 DF, BID
  4. LYRICA [Suspect]
     Indication: BACK PAIN
  5. TYLENOL [PARACETAMOL] [Suspect]
     Indication: PAIN IN EXTREMITY
  6. TYLENOL [PARACETAMOL] [Suspect]
     Indication: BACK PAIN
  7. ADVIL [Suspect]
     Indication: PAIN IN EXTREMITY
  8. ADVIL [Suspect]
     Indication: BACK PAIN
  9. CLONAZEPAM [Concomitant]
     Indication: ANXIETY
     Dosage: 5 MG, QD
  10. ATORVASTATIN CALCIUM [Concomitant]
     Indication: BLOOD CHOLESTEROL INCREASED
     Dosage: 20 MG, QD
  11. SYNTHROID [Concomitant]
     Indication: AUTOIMMUNE THYROIDITIS
     Dosage: 0.025 MG, QD
  12. SOMA [Concomitant]
     Dosage: 350 MG, TID
  13. PREGABALIN [Concomitant]
     Dosage: 50 MG, BID

REACTIONS (8)
  - Abasia [Unknown]
  - Urinary retention [Unknown]
  - Coordination abnormal [Unknown]
  - Unevaluable event [Unknown]
  - Musculoskeletal stiffness [Unknown]
  - Pain in extremity [Unknown]
  - Back pain [None]
  - Surgical failure [Unknown]
